FAERS Safety Report 7633712-7 (Version None)
Quarter: 2011Q3

REPORT INFORMATION
  Report Type: 
  Country: None (occurrence: None)
  Receive Date: 20110725
  Receipt Date: 20110713
  Transmission Date: 20111222
  Serious: Yes (Hospitalization)
  Sender: FDA-Public Use
  Company Number: US-CELGENEUS-163-21880-11071416

PATIENT
  Sex: Male
  Weight: 123.49 kg

DRUGS (10)
  1. AMIODARONE HCL [Concomitant]
     Route: 065
  2. GLIPIZIDE [Concomitant]
     Route: 065
  3. METFORMIN HCL [Concomitant]
     Route: 065
  4. LOVAZA [Concomitant]
     Route: 065
  5. DIOVAN [Concomitant]
     Route: 065
  6. RANITIDINE [Concomitant]
     Route: 065
  7. REVLIMID [Suspect]
     Indication: MULTIPLE MYELOMA
     Dosage: 25 MILLIGRAM
     Route: 048
     Dates: start: 20110426
  8. DEXAMETHASONE [Concomitant]
     Route: 065
  9. ZOMETA [Concomitant]
     Route: 065
  10. WARFARIN SODIUM [Concomitant]
     Route: 065

REACTIONS (5)
  - HEART RATE ABNORMAL [None]
  - BLOOD CREATININE INCREASED [None]
  - FULL BLOOD COUNT DECREASED [None]
  - CHONDROCALCINOSIS PYROPHOSPHATE [None]
  - BLOOD PRESSURE ABNORMAL [None]
